FAERS Safety Report 6645805-1 (Version None)
Quarter: 2010Q1

REPORT INFORMATION
  Report Type: 
  Country: None (occurrence: None)
  Receive Date: 20100323
  Receipt Date: 20100317
  Transmission Date: 20100710
  Serious: Yes (Other)
  Sender: FDA-Public Use
  Company Number: US-ELI_LILLY_AND_COMPANY-US201003004952

PATIENT
  Sex: Male

DRUGS (1)
  1. HUMALOG [Suspect]
     Indication: DIABETES MELLITUS
     Dosage: UNK, UNK
     Dates: start: 20060101

REACTIONS (5)
  - ASTHENIA [None]
  - BLOOD PRESSURE DECREASED [None]
  - DIAPHRAGMATIC HERNIA [None]
  - FATIGUE [None]
  - MOVEMENT DISORDER [None]
